FAERS Safety Report 8228331-8 (Version None)
Quarter: 2012Q1

REPORT INFORMATION
  Report Type: 
  Country: None (occurrence: None)
  Receive Date: 20120322
  Receipt Date: 20110923
  Transmission Date: 20120608
  Serious: Yes (Other)
  Sender: FDA-Public Use
  Company Number: US-BRISTOL-MYERS SQUIBB COMPANY-16106536

PATIENT
  Age: 60 Year
  Sex: Male
  Weight: 78 kg

DRUGS (4)
  1. DEXAMETHASONE [Concomitant]
     Route: 042
  2. SODIUM CHLORIDE [Concomitant]
  3. ERBITUX [Suspect]
     Indication: COLON CANCER
     Dosage: LOT#10C00001A-EXP DT 2/2013;ERBITUX100MG/ML
     Route: 042
     Dates: start: 20110920
  4. ZOFRAN [Concomitant]
     Route: 042

REACTIONS (2)
  - PRURITUS [None]
  - RASH [None]
